FAERS Safety Report 24353956 (Version 1)
Quarter: 2024Q3

REPORT INFORMATION
  Report Type: Spontaneous
  Country: DE (occurrence: DE)
  Receive Date: 20240923
  Receipt Date: 20240923
  Transmission Date: 20241017
  Serious: Yes (Other)
  Sender: AMGEN
  Company Number: DE-AMGEN-DEUSP2024186932

PATIENT
  Age: 60 Year
  Sex: Female

DRUGS (1)
  1. PROLIA [Suspect]
     Active Substance: DENOSUMAB
     Indication: Osteoporosis postmenopausal
     Dosage: 60 MILLIGRAM, Q6MO
     Route: 065
     Dates: start: 2022, end: 2023

REACTIONS (5)
  - Tibia fracture [Unknown]
  - Osteonecrosis of jaw [Unknown]
  - Hand fracture [Unknown]
  - Patella fracture [Unknown]
  - Depression [Unknown]

NARRATIVE: CASE EVENT DATE: 20220101
